FAERS Safety Report 15826713 (Version 1)
Quarter: 2019Q1

REPORT INFORMATION
  Report Type: Spontaneous
  Country: US (occurrence: US)
  Receive Date: 20190115
  Receipt Date: 20190115
  Transmission Date: 20190417
  Serious: No
  Sender: FDA-Public Use
  Company Number: US-REGENERON PHARMACEUTICALS, INC.-2018-14025

PATIENT

DRUGS (2)
  1. EYLEA [Suspect]
     Active Substance: AFLIBERCEPT
     Dosage: LEFT EYE (OS), EVERY COUPLE OF MONTHS
     Dates: start: 20170426, end: 20170426
  2. EYLEA [Suspect]
     Active Substance: AFLIBERCEPT
     Indication: MACULAR FIBROSIS
     Dosage: LEFT EYE (OS), EVERY COUPLE OF MONTHS
     Dates: start: 201609

REACTIONS (2)
  - Product dose omission [Unknown]
  - Off label use [Unknown]
